FAERS Safety Report 6244875-2 (Version None)
Quarter: 2009Q2

REPORT INFORMATION
  Report Type: 
  Country: None (occurrence: None)
  Receive Date: 20090625
  Receipt Date: 20090624
  Transmission Date: 20091009
  Serious: Yes (Life-Threatening, Hospitalization, Other)
  Sender: FDA-Public Use
  Company Number: A0793537A

PATIENT
  Age: 19 Year
  Sex: Male

DRUGS (2)
  1. ROSIGLITAZONE [Suspect]
     Route: 048
     Dates: start: 20051022, end: 20090201
  2. METFORMIN HCL [Suspect]
     Route: 048
     Dates: start: 20051022, end: 20090201

REACTIONS (1)
  - DIABETIC KETOACIDOSIS [None]
